FAERS Safety Report 6704013-6 (Version None)
Quarter: 2010Q2

REPORT INFORMATION
  Report Type: 
  Country: None (occurrence: None)
  Receive Date: 20100430
  Receipt Date: 20100427
  Transmission Date: 20101027
  Serious: Yes (Life-Threatening, Hospitalization)
  Sender: FDA-Public Use
  Company Number: CN-SANOFI-AVENTIS-2010SA024179

PATIENT
  Age: 67 Year
  Sex: Female

DRUGS (8)
  1. DOCETAXEL [Suspect]
     Route: 041
     Dates: start: 20090511, end: 20090511
  2. CISPLATIN [Suspect]
     Route: 041
     Dates: start: 20090511, end: 20090514
  3. NORMAL SALINE [Concomitant]
     Dates: start: 20090501, end: 20090511
  4. NORMAL SALINE [Concomitant]
     Dates: start: 20090511, end: 20090514
  5. ANTIEMETICS AND ANTINAUSEANTS [Concomitant]
     Indication: VOMITING
     Dates: start: 20090511, end: 20090514
  6. ALL OTHER THERAPEUTIC PRODUCTS [Concomitant]
     Indication: PROPHYLAXIS
     Dates: start: 20090511, end: 20090514
  7. I.V. SOLUTIONS [Concomitant]
     Dates: start: 20090511, end: 20090514
  8. ALL OTHER THERAPEUTIC PRODUCTS [Concomitant]
     Dates: start: 20090511, end: 20090514

REACTIONS (9)
  - ANURIA [None]
  - DIARRHOEA [None]
  - DRUG INTERACTION [None]
  - ELECTROLYTE IMBALANCE [None]
  - HYPOTENSION [None]
  - LEUKOPENIA [None]
  - ORAL INFECTION [None]
  - SHOCK [None]
  - VOMITING [None]
